FAERS Safety Report 7548481-9 (Version None)
Quarter: 2011Q2

REPORT INFORMATION
  Report Type: 
  Country: None (occurrence: None)
  Receive Date: 20110608
  Receipt Date: 20110527
  Transmission Date: 20111010
  Serious: Yes (Hospitalization)
  Sender: FDA-Public Use
  Company Number: GER/UKI/11/0018234

PATIENT
  Age: 5 Year
  Sex: Male

DRUGS (8)
  1. CLOBAZAM (CLOBAZAM) [Concomitant]
  2. ERYTHROMYCIN [Suspect]
     Indication: PNEUMONIA MYCOPLASMAL
  3. VALPROATE SODIUM [Concomitant]
  4. PHENYTOIN [Suspect]
     Indication: STATUS EPILEPTICUS
  5. PIPERACILLIN AND TAZOBACTAM [Suspect]
     Indication: PNEUMONIA MYCOPLASMAL
  6. LAMOTRIGINE [Suspect]
     Indication: CONVULSION
  7. CEFOTAXIME SODIUM [Suspect]
     Indication: PNEUMONIA MYCOPLASMAL
  8. GENTAMICIN [Suspect]
     Indication: PNEUMONIA MYCOPLASMAL

REACTIONS (15)
  - MOVEMENT DISORDER [None]
  - ARRHYTHMIA [None]
  - CEREBROVASCULAR DISORDER [None]
  - CIRCULATORY COLLAPSE [None]
  - LEARNING DISORDER [None]
  - PNEUMONIA MYCOPLASMAL [None]
  - APHASIA [None]
  - AKINESIA [None]
  - HYPOTONIA [None]
  - CEREBRAL ATROPHY [None]
  - COGNITIVE DISORDER [None]
  - STATUS EPILEPTICUS [None]
  - DYSTONIA [None]
  - BRAIN OEDEMA [None]
  - HYPOXIC-ISCHAEMIC ENCEPHALOPATHY [None]
